FAERS Safety Report 4929780-3 (Version None)
Quarter: 2006Q1

REPORT INFORMATION
  Report Type: 
  Country: None (occurrence: None)
  Receive Date: 20060301
  Receipt Date: 20051019
  Transmission Date: 20060701
  Serious: Yes (Hospitalization)
  Sender: FDA-Public Use
  Company Number: US-MERCK-0510USA08161

PATIENT
  Age: 66 Year
  Sex: Female
  Weight: 93 kg

DRUGS (9)
  1. VIOXX [Suspect]
     Indication: ARTHRITIS
     Route: 048
     Dates: start: 20000321, end: 20040929
  2. ASPIRIN [Concomitant]
     Route: 065
     Dates: start: 20000703
  3. INSULIN [Concomitant]
     Route: 065
  4. ANTIVERT [Concomitant]
     Route: 065
  5. SIMVASTATIN [Concomitant]
     Route: 065
  6. NEURONTIN [Concomitant]
     Route: 065
  7. LORTAB [Concomitant]
     Route: 065
  8. VICOPROFEN [Concomitant]
     Route: 065
  9. GLUCOPHAGE [Concomitant]
     Route: 065

REACTIONS (5)
  - CATARACT [None]
  - CEREBROVASCULAR ACCIDENT [None]
  - DIABETIC MICROANGIOPATHY [None]
  - THYROID DISORDER [None]
  - URINARY TRACT INFECTION [None]
